FAERS Safety Report 17302691 (Version 2)
Quarter: 2020Q1

REPORT INFORMATION
  Report Type: Spontaneous
  Country: DE (occurrence: DE)
  Receive Date: 20200122
  Receipt Date: 20200128
  Transmission Date: 20200409
  Serious: Yes (Death, Life-Threatening, Other)
  Sender: FDA-Public Use
  Company Number: DE-MYLANLABS-2020M1006641

PATIENT
  Age: 64 Year
  Sex: Female
  Weight: 62 kg

DRUGS (1)
  1. NOVANTRONE [Suspect]
     Active Substance: MITOXANTRONE HYDROCHLORIDE
     Indication: MULTIPLE SCLEROSIS
     Dosage: UNK
     Route: 065
     Dates: start: 201607, end: 201706

REACTIONS (13)
  - Open angle glaucoma [Unknown]
  - Glaucoma [Unknown]
  - Secondary progressive multiple sclerosis [Unknown]
  - Central nervous system lymphoma [Unknown]
  - Gait disturbance [Unknown]
  - Arthritis [Unknown]
  - Fatigue [Unknown]
  - Hemiparesis [Unknown]
  - Spinal cord injury [Unknown]
  - Central nervous system lesion [Unknown]
  - Dysdiadochokinesis [Unknown]
  - Glioblastoma [Fatal]
  - Cerebral disorder [Unknown]

NARRATIVE: CASE EVENT DATE: 201903
